FAERS Safety Report 11845805 (Version 2)
Quarter: 2016Q1

REPORT INFORMATION
  Report Type: Spontaneous
  Country: US (occurrence: US)
  Receive Date: 20151217
  Receipt Date: 20160112
  Transmission Date: 20160526
  Serious: No
  Sender: FDA-Public Use
  Company Number: US-PFIZER INC-2015424584

PATIENT
  Age: 66 Year
  Sex: Female

DRUGS (3)
  1. LETROZOLE. [Suspect]
     Active Substance: LETROZOLE
     Dosage: UNK
  2. IBRANCE [Suspect]
     Active Substance: PALBOCICLIB
     Dosage: 125 MG, UNK
     Dates: start: 20151116
  3. IBRANCE [Suspect]
     Active Substance: PALBOCICLIB
     Dosage: 125 MG, UNK
     Dates: start: 20151201

REACTIONS (6)
  - Blood glucose abnormal [Unknown]
  - Back pain [Unknown]
  - Arthropathy [Unknown]
  - Fatigue [Unknown]
  - Nausea [Unknown]
  - Muscle spasms [Unknown]
